FAERS Safety Report 6680935-X (Version None)
Quarter: 2010Q2

REPORT INFORMATION
  Report Type: 
  Country: None (occurrence: None)
  Receive Date: 20100414
  Receipt Date: 20100408
  Transmission Date: 20101027
  Serious: Yes (Life-Threatening, Hospitalization, Other)
  Sender: FDA-Public Use
  Company Number: JP-JNJFOC-20070901772

PATIENT
  Sex: Female
  Weight: 40 kg

DRUGS (25)
  1. ITRIZOLE [Suspect]
     Indication: ANAL CANDIDIASIS
     Route: 041
     Dates: start: 20070809, end: 20070813
  2. ITRIZOLE [Suspect]
     Route: 041
     Dates: start: 20070809, end: 20070813
  3. ITRIZOLE [Suspect]
     Indication: SYSTEMIC CANDIDA
     Route: 041
     Dates: start: 20070809, end: 20070813
  4. ITRIZOLE [Suspect]
     Route: 041
     Dates: start: 20070809, end: 20070813
  5. ITRIZOLE [Suspect]
     Indication: URINARY TRACT INFECTION FUNGAL
     Route: 041
     Dates: start: 20070809, end: 20070813
  6. ITRIZOLE [Suspect]
     Route: 041
     Dates: start: 20070809, end: 20070813
  7. ITRIZOLE [Suspect]
     Indication: FUNGAEMIA
     Route: 041
     Dates: start: 20070809, end: 20070813
  8. ITRIZOLE [Suspect]
     Route: 041
     Dates: start: 20070809, end: 20070813
  9. PROGRAF [Concomitant]
     Indication: INTERSTITIAL LUNG DISEASE
     Route: 048
  10. LASIX [Concomitant]
     Indication: RIGHT VENTRICULAR FAILURE
     Route: 042
  11. SOLU-MEDROL [Concomitant]
     Indication: DERMATOMYOSITIS
     Route: 042
  12. TAZOCIN [Concomitant]
     Indication: PNEUMONIA
     Route: 042
     Dates: start: 20070810, end: 20070813
  13. PASIL [Concomitant]
     Indication: PNEUMONIA
     Route: 042
     Dates: start: 20070810, end: 20070813
  14. HANP [Concomitant]
     Indication: RIGHT VENTRICULAR FAILURE
     Route: 042
  15. GRAN [Concomitant]
     Indication: WHITE BLOOD CELL COUNT DECREASED
     Route: 042
     Dates: start: 20070811
  16. CANDESARTAN CILEXETIL [Concomitant]
     Indication: HYPERTENSION
     Route: 048
  17. TAKEPRON [Concomitant]
     Indication: PROPHYLAXIS
     Route: 048
  18. RENIVACE [Concomitant]
     Indication: HYPERTENSION
     Route: 048
  19. AMLODIPINE [Concomitant]
     Indication: HYPERTENSION
     Route: 048
  20. CONIEL [Concomitant]
     Indication: HYPERTENSION
     Route: 048
  21. LASIX [Concomitant]
     Route: 048
  22. ALDACTONE [Concomitant]
     Indication: RIGHT VENTRICULAR FAILURE
     Route: 048
  23. VANCOMYCIN HYDROCHLORIDE [Concomitant]
     Indication: PSEUDOMEMBRANOUS COLITIS
     Route: 048
     Dates: start: 20070810
  24. DESYREL [Concomitant]
     Indication: INSOMNIA
     Route: 048
  25. ZYPREXA [Concomitant]
     Indication: INSOMNIA
     Route: 048

REACTIONS (5)
  - BLOOD ALKALINE PHOSPHATASE INCREASED [None]
  - GAMMA-GLUTAMYLTRANSFERASE ABNORMAL [None]
  - LEUKOPENIA [None]
  - NEUTROPHIL COUNT DECREASED [None]
  - RENAL DISORDER [None]
